FAERS Safety Report 14390096 (Version 2)
Quarter: 2018Q1

REPORT INFORMATION
  Report Type: Spontaneous
  Country: JP (occurrence: JP)
  Receive Date: 20180115
  Receipt Date: 20180315
  Transmission Date: 20180509
  Serious: Yes (Hospitalization, Other)
  Sender: FDA-Public Use
  Company Number: JP-AMGEN-JPNSP2018004889

PATIENT
  Age: 69 Year
  Sex: Male

DRUGS (2)
  1. RANMARK [Suspect]
     Active Substance: DENOSUMAB
     Dosage: UNK, TOTAL 17 TIMES
     Route: 065
     Dates: start: 20161220
  2. RANMARK [Suspect]
     Active Substance: DENOSUMAB
     Indication: METASTASES TO BONE
     Dosage: UNK
     Route: 065
     Dates: start: 201307

REACTIONS (1)
  - Osteonecrosis of jaw [Unknown]
